FAERS Safety Report 6530472-8 (Version None)
Quarter: 2010Q1

REPORT INFORMATION
  Report Type: 
  Country: None (occurrence: None)
  Receive Date: 20100106
  Receipt Date: 20100106
  Transmission Date: 20100710
  Serious: Yes (Hospitalization, Other)
  Sender: FDA-Public Use
  Company Number: None

PATIENT
  Age: 87 Year
  Sex: Male
  Weight: 81.6475 kg

DRUGS (1)
  1. CIPROFLOXACIN [Suspect]
     Dosage: 2 PER DAY MORNING + AT BEDTIME
     Dates: start: 20091120, end: 20091205

REACTIONS (1)
  - LOSS OF CONSCIOUSNESS [None]
